FAERS Safety Report 12324511 (Version 1)
Quarter: 2016Q2

REPORT INFORMATION
  Report Type: Spontaneous
  Country: US (occurrence: US)
  Receive Date: 20160502
  Receipt Date: 20160502
  Transmission Date: 20160815
  Serious: Yes (Other)
  Sender: FDA-Public Use
  Company Number: US-SUPERNUS PHARMACEUTICALS, INC.-2016SUP00045

PATIENT
  Age: 49 Year
  Sex: Female

DRUGS (1)
  1. TROKENDI XR [Suspect]
     Active Substance: TOPIRAMATE
     Indication: MIGRAINE
     Dosage: UNK
     Dates: start: 201505

REACTIONS (3)
  - Sinus disorder [Unknown]
  - Drug ineffective for unapproved indication [Unknown]
  - Migraine [Unknown]

NARRATIVE: CASE EVENT DATE: 20160301
